FAERS Safety Report 17039978 (Version 1)
Quarter: 2019Q4

REPORT INFORMATION
  Report Type: Spontaneous
  Country: US (occurrence: US)
  Receive Date: 20191016
  Receipt Date: 20191016
  Transmission Date: 20200122
  Serious: No
  Sender: FDA-Public Use
  Company Number: None

PATIENT
  Sex: Male

DRUGS (1)
  1. IMATINIB MESYLATE 400 MG [Suspect]
     Active Substance: IMATINIB MESYLATE
     Indication: LEUKAEMIA
     Route: 048
     Dates: start: 201907

REACTIONS (3)
  - Fatigue [None]
  - Diarrhoea [None]
  - Bone pain [None]
